FAERS Safety Report 9576173 (Version 1)
Quarter: 2013Q4

REPORT INFORMATION
  Report Type: Spontaneous
  Country: US (occurrence: US)
  Receive Date: 20131001
  Receipt Date: 20131001
  Transmission Date: 20140711
  Serious: No
  Sender: FDA-Public Use
  Company Number: US-AMGEN-USASP2013001571

PATIENT
  Age: 44 Year
  Sex: Female
  Weight: 63.49 kg

DRUGS (9)
  1. ENBREL [Suspect]
     Indication: RHEUMATOID ARTHRITIS
     Dosage: 50 MG, QWK
     Route: 058
  2. SYNTHROID [Concomitant]
     Dosage: 100 MUG, UNK
  3. NAPROXEN [Concomitant]
     Dosage: 250 MG, UNK
  4. LISINOPRIL [Concomitant]
     Dosage: 40 MG, UNK
  5. IBUPROFEN [Concomitant]
     Dosage: 200 MG, UNK
  6. FISH OIL [Concomitant]
     Dosage: UNK
  7. CALCIUM [Concomitant]
     Dosage: 500 UNK, UNK
  8. FOLIC ACID [Concomitant]
     Dosage: UNK
  9. GLUCOSAMINE + CHONDROITIN          /01430901/ [Concomitant]
     Dosage: UNK

REACTIONS (1)
  - Sinusitis [Unknown]
